FAERS Safety Report 11102968 (Version 1)
Quarter: 2015Q2

REPORT INFORMATION
  Report Type: Spontaneous
  Country: US (occurrence: None)
  Receive Date: 20150508
  Receipt Date: 20150508
  Transmission Date: 20150821
  Serious: Yes (Hospitalization)
  Sender: FDA-Public Use
  Company Number: None

PATIENT
  Sex: Female
  Weight: 35.7 kg

DRUGS (1)
  1. HARVONI [Suspect]
     Active Substance: LEDIPASVIR\SOFOSBUVIR
     Indication: CHRONIC HEPATITIS C
     Dosage: 1 PILL
     Route: 048
     Dates: start: 20150207

REACTIONS (9)
  - Blood pressure increased [None]
  - Back pain [None]
  - Asthenia [None]
  - Intervertebral disc protrusion [None]
  - Fatigue [None]
  - Blood magnesium decreased [None]
  - Blood potassium decreased [None]
  - Blood glucose decreased [None]
  - Blood electrolytes abnormal [None]

NARRATIVE: CASE EVENT DATE: 20150410
